FAERS Safety Report 18466534 (Version 1)
Quarter: 2020Q4

REPORT INFORMATION
  Report Type: Spontaneous
  Country: GB (occurrence: GB)
  Receive Date: 20201105
  Receipt Date: 20201105
  Transmission Date: 20210114
  Serious: Yes (Life-Threatening, Hospitalization, Other)
  Sender: FDA-Public Use
  Company Number: GB-BRISTOL-MYERS SQUIBB COMPANY-BMS-2020-090767

PATIENT
  Age: 67 Year
  Sex: Male
  Weight: 69.59 kg

DRUGS (14)
  1. CETRABEN EMOLLIENT BATH ADDITIVE [Concomitant]
     Indication: PRODUCT USED FOR UNKNOWN INDICATION
     Dosage: ADD 1-2 CAPFUL/BATH OR APPLY TO WET SKIN AND RINSE
     Route: 065
     Dates: start: 20200803
  2. APIXABAN [Suspect]
     Active Substance: APIXABAN
     Indication: THROMBOSIS PROPHYLAXIS
     Dosage: 5 MILLIGRAM DAILY DOSE
     Route: 048
  3. OMEPRAZOLE. [Concomitant]
     Active Substance: OMEPRAZOLE
     Indication: PRODUCT USED FOR UNKNOWN INDICATION
     Dosage: 20 MILLIGRAM DAILY DOSE EACH MORNING. IN BLISTER PACK
     Route: 065
     Dates: start: 20200909, end: 20201014
  4. MIRTAZAPINE. [Concomitant]
     Active Substance: MIRTAZAPINE
     Indication: PRODUCT USED FOR UNKNOWN INDICATION
     Dosage: 30 MILLIGRAM DAILY DOSE, AT NIGHT.
     Route: 065
     Dates: start: 20200909
  5. PREDNISOLONE. [Concomitant]
     Active Substance: PREDNISOLONE
     Indication: PRODUCT USED FOR UNKNOWN INDICATION
     Dosage: 30 MILLIGRAM, DAILY DOSE FOR CHEST: EACH MORNING
     Route: 065
     Dates: start: 20200805, end: 20200809
  6. FOLIC ACID. [Concomitant]
     Active Substance: FOLIC ACID
     Indication: PRODUCT USED FOR UNKNOWN INDICATION
     Dosage: 5 MILLIGRAM DAILY DOSE, IN THE MORNING. IN BLISTER PACK PLEASE
     Route: 065
     Dates: start: 20200909
  7. CYANOCOBALAMIN. [Concomitant]
     Active Substance: CYANOCOBALAMIN
     Indication: PRODUCT USED FOR UNKNOWN INDICATION
     Dosage: 50 MICROGRAM DAILY DOSE, IN THE MORNING. IN BLISTER PACK
     Route: 065
     Dates: start: 20200909
  8. DULOXETINE. [Concomitant]
     Active Substance: DULOXETINE
     Indication: PAIN
     Dosage: 60 MILLIGRAM DAILY DOSE, IN THE MORNING. IN BLISTER PACK
     Route: 065
     Dates: start: 20200909
  9. FOSTAIR [Concomitant]
     Active Substance: BECLOMETHASONE\FORMOTEROL
     Indication: PRODUCT USED FOR UNKNOWN INDICATION
     Dosage: 4 DOSAGE FORM DAILY DOSE, PUFFS, 100MICROGRAMS/DOSE / 6MICROGRAMS/DOSE
     Route: 065
     Dates: start: 20200803
  10. TAMSULOSIN [Concomitant]
     Active Substance: TAMSULOSIN
     Indication: BLADDER OUTLET OBSTRUCTION
     Dosage: 400 MICROGRAM, DAILY DOSE AFTER BREAKFAST
     Route: 065
     Dates: start: 20200909
  11. DOXYCYCLINE. [Concomitant]
     Active Substance: DOXYCYCLINE
     Indication: PRODUCT USED FOR UNKNOWN INDICATION
     Dosage: FOR CHEST: TAKE TWO IMMEDIATELY, THEN ONE A DAY.
     Route: 065
     Dates: start: 20200805
  12. BISOPROLOL [Concomitant]
     Active Substance: BISOPROLOL
     Indication: CARDIAC DISORDER
     Dosage: 1 DOSAGE FORM DAILY DOSE, 2.5 MG OR 5 MG IN BLISTER PACK PLEASE
     Route: 065
     Dates: start: 20200909, end: 20201014
  13. GABAPENTIN. [Concomitant]
     Active Substance: GABAPENTIN
     Indication: PAIN
     Dosage: 300 MILLIGRAM DAILY DOSE, ONE IN THE MORNING, TWO IN THE EVENING. IN BLISTER PACK PLEASE
     Route: 065
     Dates: start: 20200909, end: 20201014
  14. THIAMINE. [Concomitant]
     Active Substance: THIAMINE
     Indication: PRODUCT USED FOR UNKNOWN INDICATION
     Dosage: 300 MILLIGRAM DAILY DOSE, IN BLISTER PACK PLEASE
     Route: 065
     Dates: start: 20200909

REACTIONS (8)
  - Hyperkalaemia [Unknown]
  - Gastrointestinal haemorrhage [Recovering/Resolving]
  - Hypoglycaemia [Unknown]
  - Pneumonia aspiration [Unknown]
  - Melaena [Unknown]
  - Ketoacidosis [Unknown]
  - Chronic obstructive pulmonary disease [Unknown]
  - Atrial fibrillation [Unknown]

NARRATIVE: CASE EVENT DATE: 20200928
